FAERS Safety Report 25988576 (Version 1)
Quarter: 2025Q4

REPORT INFORMATION
  Report Type: Spontaneous
  Country: US (occurrence: US)
  Receive Date: 20251103
  Receipt Date: 20251103
  Transmission Date: 20260118
  Serious: Yes (Life-Threatening, Hospitalization)
  Sender: ACCORD
  Company Number: US-MLMSERVICE-20251015-PI677446-00278-1

PATIENT
  Age: 64 Year
  Sex: Female

DRUGS (1)
  1. RAMIPRIL [Suspect]
     Active Substance: RAMIPRIL
     Dosage: INGESTING UP TO 600 MG OF RAMIPRIL
     Route: 048

REACTIONS (7)
  - Shock [Recovering/Resolving]
  - Distributive shock [Recovering/Resolving]
  - Acute kidney injury [Not Recovered/Not Resolved]
  - Pneumatosis intestinalis [Unknown]
  - Liver injury [Recovering/Resolving]
  - Blood lactic acid increased [Recovering/Resolving]
  - Intentional overdose [Unknown]
